FAERS Safety Report 12978951 (Version 1)
Quarter: 2016Q4

REPORT INFORMATION
  Report Type: Spontaneous
  Country: US (occurrence: US)
  Receive Date: 20161125
  Receipt Date: 20161125
  Transmission Date: 20170207
  Serious: No
  Sender: FDA-Public Use
  Company Number: None

PATIENT
  Age: 79 Year
  Sex: Female

DRUGS (1)
  1. REVLIMID [Suspect]
     Active Substance: LENALIDOMIDE
     Indication: PLASMA CELL MYELOMA
     Route: 048
     Dates: start: 20130307, end: 20130321

REACTIONS (4)
  - Decreased appetite [None]
  - Blood glucose increased [None]
  - Constipation [None]
  - Cough [None]

NARRATIVE: CASE EVENT DATE: 20130321
